FAERS Safety Report 11631818 (Version 1)
Quarter: 2015Q4

REPORT INFORMATION
  Report Type: Spontaneous
  Country: US (occurrence: None)
  Receive Date: 20151013
  Receipt Date: 20151013
  Transmission Date: 20160304
  Serious: Yes (Other)
  Sender: FDA-Public Use
  Company Number: 2015US0568

PATIENT

DRUGS (1)
  1. ANAKINRA (ANAKINRA) [Suspect]
     Active Substance: ANAKINRA
     Indication: JUVENILE IDIOPATHIC ARTHRITIS

REACTIONS (3)
  - Cytopenia [None]
  - Histiocytosis haematophagic [None]
  - Liver function test abnormal [None]
